FAERS Safety Report 26091600 (Version 1)
Quarter: 2025Q4

REPORT INFORMATION
  Report Type: Report from Study
  Country: US (occurrence: US)
  Receive Date: 20251126
  Receipt Date: 20251126
  Transmission Date: 20260117
  Serious: Yes (Death)
  Sender: ROCHE
  Company Number: US-ROCHE-10000443187

PATIENT
  Age: 89 Year
  Sex: Female

DRUGS (1)
  1. ERIVEDGE [Suspect]
     Active Substance: VISMODEGIB
     Indication: Breast cancer female
     Dosage: TAKE 1 CAPSULE BY MOUTH DAILY??END DATE: 13-JUN-2025
     Route: 048

REACTIONS (2)
  - Death [Fatal]
  - Off label use [Unknown]

NARRATIVE: CASE EVENT DATE: 20240824
